FAERS Safety Report 5097125-7 (Version None)
Quarter: 2006Q3

REPORT INFORMATION
  Report Type: 
  Country: None (occurrence: None)
  Receive Date: 20060828
  Receipt Date: 20060814
  Transmission Date: 20061208
  Serious: Yes (Other)
  Sender: FDA-Public Use
  Company Number: NLWYE380227JUL06

PATIENT
  Age: 5 Month
  Sex: Male

DRUGS (4)
  1. REFACTO [Suspect]
     Indication: FACTOR VIII DEFICIENCY
     Dosage: 250 IU 1X PER 1 DAY INTRAVENOUS; SEE IMAGE
     Route: 042
     Dates: start: 20060701, end: 20060701
  2. REFACTO [Suspect]
     Indication: FACTOR VIII DEFICIENCY
     Dosage: 250 IU 1X PER 1 DAY INTRAVENOUS; SEE IMAGE
     Route: 042
     Dates: start: 20060706, end: 20060706
  3. REFACTO [Suspect]
     Indication: FACTOR VIII DEFICIENCY
     Dosage: 250 IU 1X PER 1 DAY INTRAVENOUS; SEE IMAGE
     Route: 042
     Dates: start: 20060706, end: 20060706
  4. REFACTO [Suspect]
     Indication: FACTOR VIII DEFICIENCY
     Dosage: 250 IU 1X PER 1 DAY INTRAVENOUS; SEE IMAGE
     Route: 042
     Dates: start: 20060706, end: 20060717

REACTIONS (3)
  - CATHETER RELATED INFECTION [None]
  - FACTOR VIII INHIBITION [None]
  - STAPHYLOCOCCAL SEPSIS [None]
